FAERS Safety Report 13601282 (Version 1)
Quarter: 2017Q2

REPORT INFORMATION
  Report Type: Spontaneous
  Country: US (occurrence: US)
  Receive Date: 20170601
  Receipt Date: 20170601
  Transmission Date: 20170830
  Serious: Yes (Hospitalization)
  Sender: FDA-Public Use
  Company Number: None

PATIENT
  Age: 43 Year
  Sex: Female
  Weight: 63.5 kg

DRUGS (16)
  1. PFEIFFER PRIMER MULTIVITAMIN [Concomitant]
     Active Substance: VITAMINS
  2. EUCERIN [Concomitant]
     Active Substance: ENSULIZOLE\EUCERIN\OCTINOXATE\OCTISALATE\TITANIUM DIOXIDE\ZINC OXIDE
  3. B12 SHOTS [Concomitant]
     Active Substance: CYANOCOBALAMIN
  4. DIVALPROEX [Concomitant]
     Active Substance: DIVALPROEX SODIUM
  5. CLOZARIL [Concomitant]
     Active Substance: CLOZAPINE
  6. DOCUSATE [Concomitant]
     Active Substance: DOCUSATE
  7. NAICINAMIDE WITH VITAMIN C [Concomitant]
  8. OXAZEPAM. [Concomitant]
     Active Substance: OXAZEPAM
  9. FISH OIL [Concomitant]
     Active Substance: FISH OIL
  10. MIRALAX [Suspect]
     Active Substance: POLYETHYLENE GLYCOL 3350
  11. LITHIUM CARBONATE. [Concomitant]
     Active Substance: LITHIUM CARBONATE
  12. PYRIDOXOL PHOSPHATE [Concomitant]
  13. KEPPRA [Suspect]
     Active Substance: LEVETIRACETAM
     Indication: SEIZURE
     Dosage: TWICE DAILY AM + PM
     Route: 048
     Dates: start: 20150323, end: 20170201
  14. OYST/CAL/D [Concomitant]
  15. OLANZAPINE. [Concomitant]
     Active Substance: OLANZAPINE
  16. SENEKOT [Concomitant]

REACTIONS (11)
  - Aggression [None]
  - Obsessive thoughts [None]
  - Frustration tolerance decreased [None]
  - Seizure [None]
  - Condition aggravated [None]
  - Mental disorder [None]
  - Fall [None]
  - Hostility [None]
  - Laceration [None]
  - Anxiety [None]
  - Abnormal behaviour [None]

NARRATIVE: CASE EVENT DATE: 20170120
